FAERS Safety Report 5901000-2 (Version None)
Quarter: 2008Q3

REPORT INFORMATION
  Report Type: 
  Country: None (occurrence: None)
  Receive Date: 20080829
  Receipt Date: 20080708
  Transmission Date: 20090109
  Serious: No
  Sender: FDA-Public Use
  Company Number: PHEH2008US06115

PATIENT
  Sex: Female

DRUGS (2)
  1. EXJADE [Suspect]
     Indication: SERUM FERRITIN INCREASED
  2. VITAMIN B12 [Suspect]
     Dosage: , INJECTION NOS
     Route: 042

REACTIONS (2)
  - DRUG INTERACTION [None]
  - SERUM FERRITIN INCREASED [None]
